FAERS Safety Report 8826203 (Version 3)
Quarter: 2013Q2

REPORT INFORMATION
  Report Type: Spontaneous
  Country: US (occurrence: US)
  Receive Date: 20121005
  Receipt Date: 20130531
  Transmission Date: 20140414
  Serious: Yes (Hospitalization)
  Sender: FDA-Public Use
  Company Number: US-CELGENEUS-163-21880-12100318

PATIENT
  Age: 53 Year
  Sex: Female

DRUGS (4)
  1. REVLIMID [Suspect]
     Indication: T-CELL LYMPHOMA
     Dosage: 20 MILLIGRAM
     Route: 048
     Dates: start: 201110
  2. REVLIMID [Suspect]
     Dosage: 15 MILLIGRAM
     Route: 048
     Dates: start: 201111
  3. PCN [Suspect]
     Indication: UPPER RESPIRATORY TRACT INFECTION
     Route: 065
  4. ANTIBIOTICS [Concomitant]
     Indication: UPPER RESPIRATORY TRACT INFECTION
     Route: 065

REACTIONS (4)
  - Cerebral vasoconstriction [Recovered/Resolved]
  - Hypersensitivity [Not Recovered/Not Resolved]
  - Upper respiratory tract infection [Recovered/Resolved]
  - T-cell lymphoma [Unknown]
